FAERS Safety Report 21396209 (Version 2)
Quarter: 2022Q4

REPORT INFORMATION
  Report Type: Spontaneous
  Country: JP (occurrence: JP)
  Receive Date: 20220930
  Receipt Date: 20221201
  Transmission Date: 20230113
  Serious: Yes (Hospitalization, Other)
  Sender: FDA-Public Use
  Company Number: JP-BRISTOL-MYERS SQUIBB COMPANY-2022-114287

PATIENT
  Age: 53 Year
  Sex: Female
  Weight: 51.2 kg

DRUGS (13)
  1. ABRAXANE [Suspect]
     Active Substance: PACLITAXEL
     Indication: Pancreatic carcinoma
     Dosage: 20.0 MILLIGRAM(S) (140 MILLIGRAM(S), 1 IN 1 WEEK)?ON DAYS 1, 8, AND 15 OF EACH 28-DAY CYCLE
     Route: 041
     Dates: start: 20220121, end: 20220121
  2. ABRAXANE [Suspect]
     Active Substance: PACLITAXEL
     Indication: Pancreatic carcinoma metastatic
  3. GEMCITABINE HYDROCHLORIDE [Suspect]
     Active Substance: GEMCITABINE HYDROCHLORIDE
     Indication: Pancreatic carcinoma metastatic
     Dosage: ON DAYS 1, 8, AND 15 OF EACH 28-DAY CYCLE
     Route: 065
     Dates: start: 20220121
  4. GEMCITABINE HYDROCHLORIDE [Suspect]
     Active Substance: GEMCITABINE HYDROCHLORIDE
     Dosage: 171.4 MILLIGRAM(S) (1200 MILLIGRAM(S), 1 IN 1 WEEK)
     Route: 041
     Dates: start: 20211222, end: 20220107
  5. GEMCITABINE HYDROCHLORIDE [Suspect]
     Active Substance: GEMCITABINE HYDROCHLORIDE
     Dosage: 171.4 MILLIGRAM(S) (1200 MILLIGRAM(S), 1 IN 1 WEEK)
     Route: 041
     Dates: start: 20220215
  6. LOXOPROFEN SODIUM [Suspect]
     Active Substance: LOXOPROFEN SODIUM
     Indication: Cancer pain
     Route: 048
     Dates: start: 20220117
  7. REBAMIPIDE [Suspect]
     Active Substance: REBAMIPIDE
     Indication: Cancer pain
     Route: 048
     Dates: start: 20220117
  8. OXYCODONE [Concomitant]
     Active Substance: OXYCODONE
     Indication: Cancer pain
     Dosage: 10.0 MILLIGRAM(S) (5 MILLIGRAM(S), 1 IN 12 HOUR)
     Route: 048
     Dates: start: 20211214
  9. FEXOFENADINE HYDROCHLORIDE [Concomitant]
     Active Substance: FEXOFENADINE HYDROCHLORIDE
     Indication: Product used for unknown indication
     Dosage: 120.0 MILLIGRAM(S) (60 MILLIGRAM(S), 1 IN 12 HOUR)
     Route: 048
  10. LINAGLIPTIN [Concomitant]
     Active Substance: LINAGLIPTIN
     Indication: Diabetes mellitus
     Route: 048
  11. CEFEPIME HYDROCHLORIDE [Concomitant]
     Active Substance: CEFEPIME HYDROCHLORIDE
     Indication: Febrile neutropenia
     Route: 041
     Dates: start: 20220126, end: 20220202
  12. FILGRASTIM MEDICINE [Concomitant]
     Indication: Febrile neutropenia
     Dosage: 75.0 MICROGRAM(S) (75 MICROGRAM(S), 1 IN 1 DAY)
     Route: 058
     Dates: start: 20220126, end: 20220130
  13. SODIUM FERROUS CITRATE [Concomitant]
     Active Substance: SODIUM FERROUS CITRATE
     Indication: Product used for unknown indication
     Dosage: 100.0 MILLIGRAM(S) (50 MILLIGRAM(S), 1 IN 12 HOUR)
     Route: 048

REACTIONS (4)
  - Leukopenia [Recovered/Resolved]
  - Febrile neutropenia [Recovered/Resolved]
  - Hypophagia [Recovering/Resolving]
  - Malaise [Recovering/Resolving]

NARRATIVE: CASE EVENT DATE: 20220126
